FAERS Safety Report 10004148 (Version 1)
Quarter: 2014Q1

REPORT INFORMATION
  Report Type: Spontaneous
  Country: PL (occurrence: PL)
  Receive Date: 20140312
  Receipt Date: 20140312
  Transmission Date: 20141002
  Serious: Yes (Other)
  Sender: FDA-Public Use
  Company Number: CHPA2014PL003573

PATIENT
  Sex: Female

DRUGS (1)
  1. THERAFLU EXTRAGRIP [Suspect]
     Indication: NASOPHARYNGITIS
     Route: 048

REACTIONS (2)
  - Rash pruritic [Recovered/Resolved]
  - Generalised erythema [Recovered/Resolved]
